FAERS Safety Report 7915268 (Version 5)
Quarter: 2012Q4

REPORT INFORMATION
  Report Type: Spontaneous
  Country: JP (occurrence: None)
  Receive Date: 20110405
  Receipt Date: 20120529
  Transmission Date: 20130627
  Serious: Yes (Hospitalization)
  Sender: FDA-Public Use
  Company Number: JP-2011-10556

PATIENT
  Age: 54 Year
  Sex: Male
  Weight: 50 kg

DRUGS (7)
  1. SAMSCA [Suspect]
     Indication: PULMONARY OEDEMA
     Dosage: 7.5 MG MILLIGRAM(S), QAM, PARENTERAL
     Route: 051
  2. LASIX [Concomitant]
  3. VANCOMYCIN [Concomitant]
  4. SELARA (EPLERENONE) TABLET [Concomitant]
  5. CARVEDILOL [Concomitant]
  6. HANP (CARPERITIDE) INJECTION [Concomitant]
  7. DOPAMINE (DOPAMINE HYDROCHLORIDE) INJECTION [Concomitant]

REACTIONS (5)
  - HYPERNATRAEMIA [None]
  - DEHYDRATION [None]
  - HAEMODIALYSIS [None]
  - RED BLOOD CELL COUNT DECREASED [None]
  - HAEMOGLOBIN DECREASED [None]
